FAERS Safety Report 22033527 (Version 2)
Quarter: 2023Q1

REPORT INFORMATION
  Report Type: Spontaneous
  Country: JP (occurrence: JP)
  Receive Date: 20230224
  Receipt Date: 20230320
  Transmission Date: 20230417
  Serious: Yes (Death, Life-Threatening, Other)
  Sender: FDA-Public Use
  Company Number: JP-GSKJP-JP2022JPN135793AA

PATIENT

DRUGS (64)
  1. DAPRODUSTAT [Suspect]
     Active Substance: DAPRODUSTAT
     Indication: Nephrogenic anaemia
     Dosage: 2 MG, QD, AFTER BREAKFAST
     Route: 048
     Dates: start: 20211001, end: 20211104
  2. DAPRODUSTAT [Suspect]
     Active Substance: DAPRODUSTAT
     Dosage: 4 MG, QD, AFTER BREAKFAST
     Dates: start: 20211105, end: 20220903
  3. AMLODIPINE BESYLATE [Concomitant]
     Active Substance: AMLODIPINE BESYLATE
     Dosage: 2.5 MG, QD, AFTER BREAKFAST
  4. ROSUVASTATIN OD TABLETS [Concomitant]
     Dosage: 2.5 MG, QD, AFTER BREAKFAST
  5. FEBUXOSTAT [Concomitant]
     Active Substance: FEBUXOSTAT
     Dosage: 10 MG, QD, AFTER BREAKFAST
  6. MICARDIS [Concomitant]
     Active Substance: TELMISARTAN
     Dosage: 20 MG, QD, AFTER BREAKFAST
  7. CLOPIDOGREL BISULFATE [Concomitant]
     Active Substance: CLOPIDOGREL BISULFATE
     Dosage: 75 MG, QD, AFTER BREAKFAST
  8. SYMMETREL [Concomitant]
     Active Substance: AMANTADINE HYDROCHLORIDE
     Dosage: 50 MG, QD, AFTER BREAKFAST
  9. RABEPRAZOLE NA TOWA TABLETS [Concomitant]
     Dosage: 10 MG, QD, AFTER BREAKFAST
  10. TIZANIDINE [Concomitant]
     Active Substance: TIZANIDINE
     Dosage: 2 MG, BID, AFTER BREAKFAST AND DINNER
  11. DESYREL TABLETS [Concomitant]
     Dosage: 25 MG, QD, BEFORE BEDTIME
  12. LULICONAZOLE [Concomitant]
     Active Substance: LULICONAZOLE
     Dosage: UNK
  13. NORVASC TABLETS [Concomitant]
     Dosage: 2.5 MG, QD, AFTER BREAKFAST
  14. DIOVAN TABLETS [Concomitant]
     Dosage: 40 MG, QD, AFTER BREAKFAST
  15. LOXOPROFEN SODIUM DIHYDRATE [Concomitant]
     Active Substance: LOXOPROFEN SODIUM DIHYDRATE
     Dosage: 100 MG, QD
     Route: 061
  16. VIBEGRON [Concomitant]
     Active Substance: VIBEGRON
     Dosage: 50 MG, QD, AFTER DINNER
     Dates: start: 20220805
  17. MAGNESIUM OXIDE [Concomitant]
     Active Substance: MAGNESIUM OXIDE
     Dosage: 990 MG, TID, AFTER EVERY MEAL
     Dates: start: 20220809
  18. HALCION TABLET [Concomitant]
     Dosage: 0.25 MG, QD, BEFORE BEDTIME
     Dates: start: 20220812
  19. CALONAL [Concomitant]
     Active Substance: ACETAMINOPHEN
     Dosage: 400 MG, TID
     Dates: start: 20220818
  20. LANSOPRAZOLE [Concomitant]
     Active Substance: LANSOPRAZOLE
     Dosage: 15 MG, QD, AFTER BREAKFAST
     Dates: start: 20220818
  21. ASPIRIN [Concomitant]
     Active Substance: ASPIRIN
     Dosage: 200 MG, QD, AFTER BREAKFAST
     Dates: start: 20220818
  22. ASPIRIN [Concomitant]
     Active Substance: ASPIRIN
     Dosage: 100 MG, QD, AFTER BREAKFAST
     Dates: start: 20220825
  23. URSO TABLETS [Concomitant]
     Dosage: 200 MG, BID
     Dates: start: 20220818, end: 20220828
  24. URSO TABLETS [Concomitant]
     Dosage: 300 MG, TID, AFTER EVERY MEAL
     Dates: start: 20220829
  25. FAMOTIDINE OD TABLETS [Concomitant]
     Dosage: 10 MG, QD, AFTER BREAKFAST
     Dates: start: 20220820
  26. SODIUM FERROUS CITRATE [Concomitant]
     Active Substance: SODIUM FERROUS CITRATE
     Dosage: 0.6 G, BID, AFTER BREAKFAST AND DINNER
     Dates: start: 20220822
  27. LINZESS TABLETS [Concomitant]
     Dosage: 0.5 MG, QD, BEFORE DINNER
     Dates: start: 20220822
  28. CILOSTAZOL OD TABLET [Concomitant]
     Dosage: 100 MG, BID, AFTER BREAKFAST AND DINNER
     Dates: start: 20220823
  29. REBAMIPIDE [Concomitant]
     Active Substance: REBAMIPIDE
     Dosage: 100 MG
     Dates: start: 20220822, end: 20220822
  30. REBAMIPIDE [Concomitant]
     Active Substance: REBAMIPIDE
     Dosage: 100 MG
     Dates: start: 20220824, end: 20220824
  31. ROZEREM TABLETS [Concomitant]
     Dosage: 8 MG, QD, BEFORE BEDTIME
     Dates: start: 20220824
  32. MEMANTINE HYDROCHLORIDE OD [Concomitant]
     Dosage: 5 MG, QD, AFTER DINNER
     Dates: start: 20220824, end: 20220830
  33. MEMANTINE HYDROCHLORIDE OD [Concomitant]
     Dosage: 10 MG, QD, AFTER DINNER
     Dates: start: 20220831
  34. AMEZINIUM METILSULFATE [Concomitant]
     Active Substance: AMEZINIUM METILSULFATE
     Dosage: 10 MG, BID, AFTER BREAKFAST AND DINNER
     Dates: start: 20220824
  35. ASPARA POTASSIUM POWDER [Concomitant]
     Dosage: 1 G, BID, AFTER BREAKFAST AND DINNER
     Dates: start: 20220825
  36. XYLOCAINE POLYAMP INJECTION [Concomitant]
     Dosage: 5 ML, 1D
     Route: 008
     Dates: start: 20220810, end: 20220810
  37. XYLOCAINE POLYAMP INJECTION [Concomitant]
     Dosage: 10 ML
     Route: 050
     Dates: start: 20220816, end: 20220816
  38. SODIUM CHLORIDE [Concomitant]
     Active Substance: SODIUM CHLORIDE
     Dosage: 500 ML, 1D
     Route: 041
     Dates: start: 20220810, end: 20220810
  39. AMINO ACIDS\DEXTROSE\ELECTROLYTES NOS\VITAMINS [Concomitant]
     Active Substance: AMINO ACIDS\DEXTROSE\ELECTROLYTES NOS\VITAMINS
     Dosage: 500 ML, 1D
     Route: 041
     Dates: start: 20220818, end: 20220818
  40. AMINO ACIDS\DEXTROSE\ELECTROLYTES NOS\VITAMINS [Concomitant]
     Active Substance: AMINO ACIDS\DEXTROSE\ELECTROLYTES NOS\VITAMINS
     Dosage: 500 ML, 1D
     Route: 041
     Dates: start: 20220901, end: 20220901
  41. AMINO ACIDS\DEXTROSE\ELECTROLYTES NOS\VITAMINS [Concomitant]
     Active Substance: AMINO ACIDS\DEXTROSE\ELECTROLYTES NOS\VITAMINS
     Dosage: 1000 ML, 1D
     Route: 041
     Dates: start: 20220902, end: 20220903
  42. LACTEC INJECTION [Concomitant]
     Dosage: 500 ML, 1D
     Route: 041
     Dates: start: 20220818, end: 20220818
  43. DEXTRAN 40 [Concomitant]
     Active Substance: DEXTRAN 40
     Dosage: 250 ML, 1D
     Route: 041
     Dates: start: 20220818, end: 20220821
  44. SOLITA-T NO.1 [Concomitant]
     Dosage: 1000 ML, 1D
     Dates: start: 20220818, end: 20220818
  45. SOLITA-T NO.1 [Concomitant]
     Dosage: 500 ML, 1D
     Route: 041
     Dates: start: 20220819, end: 20220819
  46. SOLITA-T NO.1 [Concomitant]
     Dosage: 1000 ML, 1D
     Dates: start: 20220820, end: 20220822
  47. SOLITA-T NO.1 [Concomitant]
     Dosage: 1500 ML, 1D
     Route: 041
     Dates: start: 20220823, end: 20220823
  48. SOLITA-T NO.1 [Concomitant]
     Dosage: 1000 ML, 1D
     Route: 041
     Dates: start: 20220824, end: 20220824
  49. SOLITA-T NO.1 [Concomitant]
     Dosage: 500 ML, 1D
     Route: 041
     Dates: start: 20220825, end: 20220825
  50. SOLITA-T NO.1 [Concomitant]
     Dosage: 1500 ML, 1D
     Route: 041
     Dates: start: 20220829, end: 20220831
  51. SOLITA-T NO.1 [Concomitant]
     Dosage: 500 ML, 1D
     Route: 041
     Dates: start: 20220901, end: 20220901
  52. DEXTROSE [Concomitant]
     Active Substance: DEXTROSE
     Dosage: 1500 ML, 1D
     Route: 041
     Dates: start: 20220825, end: 20220825
  53. DEXTROSE [Concomitant]
     Active Substance: DEXTROSE
     Dosage: 2000 ML, 1D
     Route: 041
     Dates: start: 20220826, end: 20220826
  54. DEXTROSE [Concomitant]
     Active Substance: DEXTROSE
     Dosage: 3000 ML, 1D
     Route: 041
     Dates: start: 20220827, end: 20220828
  55. DEXTROSE [Concomitant]
     Active Substance: DEXTROSE
     Dosage: 1500 ML, 1D
     Route: 041
     Dates: start: 20220829, end: 20220831
  56. DEXTROSE [Concomitant]
     Active Substance: DEXTROSE
     Dosage: 1000 ML, 1D
     Route: 041
     Dates: start: 20220901, end: 20220901
  57. STRONGER NEO-MINOPHAGEN C [Concomitant]
     Active Substance: AMMONIUM GLYCYRRHIZATE\CYSTEINE HYDROCHLORIDE\GLYCINE
     Dosage: 40 ML, 1D
     Route: 042
     Dates: start: 20220818, end: 20220818
  58. STRONGER NEO-MINOPHAGEN C [Concomitant]
     Active Substance: AMMONIUM GLYCYRRHIZATE\CYSTEINE HYDROCHLORIDE\GLYCINE
     Dosage: 20 ML, 1D
     Route: 042
     Dates: start: 20220819, end: 20220819
  59. STRONGER NEO-MINOPHAGEN C [Concomitant]
     Active Substance: AMMONIUM GLYCYRRHIZATE\CYSTEINE HYDROCHLORIDE\GLYCINE
     Dosage: 40 ML, 1D
     Route: 042
     Dates: start: 20220820, end: 20220826
  60. PENTCILLIN FOR INFUSION [Concomitant]
     Dosage: 1 G, 1D
     Route: 041
     Dates: start: 20220818, end: 20220825
  61. ZOSYN INTRAVENOUS INJECTION [Concomitant]
     Dosage: 4.5 G, 1D
     Route: 041
     Dates: start: 20220825, end: 20220825
  62. ZOSYN INTRAVENOUS INJECTION [Concomitant]
     Dosage: 4.5 G, 1D
     Route: 041
     Dates: start: 20220826, end: 20220901
  63. ALBUMIN HUMAN [Concomitant]
     Active Substance: ALBUMIN HUMAN
     Dosage: 12.5 G, 1D
     Route: 041
     Dates: start: 20220901, end: 20220903
  64. FUROSEMIDE [Concomitant]
     Active Substance: FUROSEMIDE
     Dosage: 20 MG, 1D
     Route: 042
     Dates: start: 20220901, end: 20220903

REACTIONS (9)
  - Multiple organ dysfunction syndrome [Fatal]
  - Transient ischaemic attack [Unknown]
  - Urinary tract infection [Unknown]
  - Chronic kidney disease [Unknown]
  - Condition aggravated [Unknown]
  - Metabolic acidosis [Recovered/Resolved]
  - Blood pressure decreased [Not Recovered/Not Resolved]
  - Ventricular tachycardia [Fatal]
  - General physical health deterioration [Unknown]

NARRATIVE: CASE EVENT DATE: 20220818
